FAERS Safety Report 4422945-9 (Version None)
Quarter: 2004Q3

REPORT INFORMATION
  Report Type: 
  Country: None (occurrence: None)
  Receive Date: 20040806
  Receipt Date: 20040726
  Transmission Date: 20050211
  Serious: Yes (Hospitalization)
  Sender: FDA-Public Use
  Company Number: US-JNJFOC-20040706871

PATIENT
  Age: 67 Year
  Sex: Female

DRUGS (4)
  1. INFLIXIMAB (INFLIXIMAB, RECOMBINANT) LYOPHILIZED POWDER [Suspect]
     Indication: RHEUMATOID ARTHRITIS
     Dosage: INTRAVENOUS
     Route: 042
     Dates: start: 20030603
  2. ARAVA [Concomitant]
  3. PREDNISONE [Concomitant]
  4. ASPIRIN (ACTYLSALICYLIC ACID) [Concomitant]

REACTIONS (1)
  - CHOLECYSTECTOMY [None]
